FAERS Safety Report 21296965 (Version 2)
Quarter: 2022Q3

REPORT INFORMATION
  Report Type: Report from Study
  Country: AR (occurrence: AR)
  Receive Date: 20220906
  Receipt Date: 20220921
  Transmission Date: 20221027
  Serious: Yes (Other)
  Sender: FDA-Public Use
  Company Number: AR-NOVARTISPH-NVSC2022AR199058

PATIENT
  Sex: Male

DRUGS (8)
  1. DIOVAN [Suspect]
     Active Substance: VALSARTAN
     Indication: Coronary artery insufficiency
     Dosage: 1 DOSAGE FORM OF 80, QD
     Route: 065
     Dates: start: 2014
  2. DIOVAN [Suspect]
     Active Substance: VALSARTAN
     Indication: Hypertension
  3. BISOPROLOL [Concomitant]
     Active Substance: BISOPROLOL
     Indication: Product used for unknown indication
     Dosage: UNK
     Route: 065
  4. ROSUVASTATIN [Concomitant]
     Active Substance: ROSUVASTATIN
     Indication: Product used for unknown indication
     Dosage: 10 MG, QD
     Route: 065
  5. LIRAGLUTIDE [Concomitant]
     Active Substance: LIRAGLUTIDE
     Indication: Metabolic syndrome
     Dosage: UNK, QD (1 OF 3 MG) (ONE AND A HALF YEAR AGO)
     Route: 065
  6. ASPIRIN [Concomitant]
     Active Substance: ASPIRIN
     Indication: Product used for unknown indication
     Dosage: UNK, QD (DOSE 1)
     Route: 065
  7. METFORMIN [Concomitant]
     Active Substance: METFORMIN HYDROCHLORIDE
     Indication: Diabetes mellitus
     Dosage: 2 DOSAGE FORM, QD
     Route: 065
  8. SAXENDA [Concomitant]
     Active Substance: LIRAGLUTIDE
     Indication: Diabetes mellitus
     Dosage: UNK
     Route: 065

REACTIONS (5)
  - Pituitary tumour [Unknown]
  - Device occlusion [Recovered/Resolved]
  - Arteriosclerosis coronary artery [Unknown]
  - Gait disturbance [Unknown]
  - Jaw disorder [Unknown]

NARRATIVE: CASE EVENT DATE: 20150101
